FAERS Safety Report 10723580 (Version 1)
Quarter: 2015Q1

REPORT INFORMATION
  Report Type: Spontaneous
  Country: US (occurrence: None)
  Receive Date: 20150114
  Receipt Date: 20150114
  Transmission Date: 20150721
  Serious: Yes (Hospitalization)
  Sender: FDA-Public Use
  Company Number: 2015-0001

PATIENT
  Age: 49 Year
  Sex: Female

DRUGS (4)
  1. WAFARIN [Concomitant]
     Active Substance: WARFARIN
  2. SODIUM THIOSULFATE [Suspect]
     Active Substance: SODIUM THIOSULFATE
     Indication: ARTERIAL DISORDER
     Route: 042
  3. EPOPROSTENOL [Concomitant]
     Active Substance: EPOPROSTENOL
  4. SODIUM THIOSULFATE [Suspect]
     Active Substance: SODIUM THIOSULFATE
     Indication: AZOTAEMIA
     Route: 042

REACTIONS (3)
  - Respiratory distress [None]
  - Metabolic acidosis [None]
  - Seizure [None]

NARRATIVE: CASE EVENT DATE: 2011
